FAERS Safety Report 25409605 (Version 1)
Quarter: 2025Q2

REPORT INFORMATION
  Report Type: Report from Study
  Country: US (occurrence: US)
  Receive Date: 20250607
  Receipt Date: 20250607
  Transmission Date: 20250716
  Serious: Yes (Other)
  Sender: JAZZ
  Company Number: US-JAZZ PHARMACEUTICALS-2025-US-014263

PATIENT
  Age: 59 Year
  Sex: Male

DRUGS (1)
  1. XYREM [Suspect]
     Active Substance: SODIUM OXYBATE
     Indication: Narcolepsy
     Dosage: UNK, BID
     Route: 048

REACTIONS (3)
  - Craniofacial fracture [Recovering/Resolving]
  - Fall [Recovering/Resolving]
  - Sensory loss [Unknown]

NARRATIVE: CASE EVENT DATE: 20250501
